FAERS Safety Report 14858608 (Version 1)
Quarter: 2018Q2

REPORT INFORMATION
  Report Type: Spontaneous
  Country: FR (occurrence: FR)
  Receive Date: 20180508
  Receipt Date: 20180508
  Transmission Date: 20180711
  Serious: Yes (Other)
  Sender: FDA-Public Use
  Company Number: FR-MERCK KGAA-2047367

PATIENT
  Age: 55 Year
  Sex: Female

DRUGS (1)
  1. NOVOTHYROX [Suspect]
     Active Substance: LEVOTHYROXINE SODIUM
     Indication: AUTOIMMUNE THYROIDITIS

REACTIONS (12)
  - Hyperthyroidism [None]
  - Hot flush [None]
  - Vertigo [None]
  - Muscle spasms [None]
  - Agitation [None]
  - Blood thyroid stimulating hormone decreased [Recovered/Resolved]
  - Loss of personal independence in daily activities [None]
  - Hypothyroidism [None]
  - Dizziness [None]
  - Decreased activity [None]
  - Social avoidant behaviour [None]
  - Blood cholesterol increased [None]

NARRATIVE: CASE EVENT DATE: 20170424
